FAERS Safety Report 9171818 (Version 1)
Quarter: 2013Q1

REPORT INFORMATION
  Report Type: Spontaneous
  Country: ES (occurrence: ES)
  Receive Date: 20130319
  Receipt Date: 20130319
  Transmission Date: 20140127
  Serious: Yes (Life-Threatening)
  Sender: FDA-Public Use
  Company Number: ES-ASTRAZENECA-2013SE17466

PATIENT
  Age: 14 Year
  Sex: Male

DRUGS (6)
  1. DIPRIVAN [Suspect]
     Indication: ANAESTHESIA
     Route: 042
     Dates: start: 20130228
  2. ULTIVA [Suspect]
     Indication: ANAESTHESIA
     Route: 065
     Dates: start: 20130228
  3. KETOROLAC TROMETHAMINE [Suspect]
     Indication: POSTOPERATIVE ANALGESIA
     Route: 041
     Dates: start: 20130228
  4. PRIMPERAN [Suspect]
     Indication: PROPHYLAXIS OF NAUSEA AND VOMITING
     Route: 041
     Dates: start: 20130228
  5. RANITIDIN [Suspect]
     Indication: PROPHYLAXIS AGAINST GASTROINTESTINAL ULCER
     Route: 041
     Dates: start: 20130228
  6. METILPREDNISOLONE [Concomitant]
     Dates: start: 20130228

REACTIONS (2)
  - Nodal rhythm [Recovered/Resolved]
  - Sinus bradycardia [Recovered/Resolved]
